FAERS Safety Report 11947856 (Version 2)
Quarter: 2022Q3

REPORT INFORMATION
  Report Type: Report from Study
  Country: US (occurrence: US)
  Receive Date: 20160125
  Receipt Date: 20220707
  Transmission Date: 20221026
  Serious: No
  Sender: FDA-Public Use
  Company Number: US-TAKEDA-2016TUS000751

PATIENT
  Age: 82 Year
  Sex: Male
  Weight: 73.923 kg

DRUGS (8)
  1. VEDOLIZUMAB [Suspect]
     Active Substance: VEDOLIZUMAB
     Indication: Colitis ulcerative
     Dosage: 300 MILLIGRAM
     Dates: start: 20160108
  2. SYNTHROID [Concomitant]
     Active Substance: LEVOTHYROXINE SODIUM
     Indication: Hypothyroidism
     Dosage: 75 MICROGRAM, QD
     Route: 048
     Dates: start: 2014
  3. ALLOPURINOL [Concomitant]
     Active Substance: ALLOPURINOL
     Indication: Rheumatoid arthritis
     Dosage: 100 MILLIGRAM, QD
     Route: 048
     Dates: start: 201506
  4. CARVEDILOL [Concomitant]
     Active Substance: CARVEDILOL
     Dosage: 3.125 MILLIGRAM, BID
     Route: 048
     Dates: start: 201203
  5. COUMADIN                           /00014802/ [Concomitant]
     Indication: Anticoagulant therapy
     Dosage: 3 MILLIGRAM
     Dates: start: 201507
  6. PANTOPRAZOLE SODIUM [Concomitant]
     Active Substance: PANTOPRAZOLE SODIUM
     Indication: Antacid therapy
     Dosage: 1 DOSAGE FORM, BID
     Route: 048
     Dates: start: 201506
  7. PREDNISONE [Concomitant]
     Active Substance: PREDNISONE
     Indication: Colitis
     Dosage: 10 MILLIGRAM, QD
     Route: 048
     Dates: start: 201507
  8. HYDROCODONE/ACETAMINOPHEN          /00607101/ [Concomitant]
     Indication: Back pain
     Dosage: UNK
     Dates: start: 201512

REACTIONS (2)
  - Infusion site inflammation [Unknown]
  - Infusion site pain [Unknown]

NARRATIVE: CASE EVENT DATE: 20160109
